FAERS Safety Report 11774149 (Version 2)
Quarter: 2015Q4

REPORT INFORMATION
  Report Type: Spontaneous
  Country: CN (occurrence: CN)
  Receive Date: 20151124
  Receipt Date: 20151208
  Transmission Date: 20160304
  Serious: Yes (Hospitalization, Other)
  Sender: FDA-Public Use
  Company Number: CN-BAYER-2015-472822

PATIENT

DRUGS (1)
  1. NEXAVAR [Suspect]
     Active Substance: SORAFENIB
     Indication: RENAL CELL CARCINOMA
     Dosage: UNK
     Route: 048
     Dates: start: 201510

REACTIONS (2)
  - Coordination abnormal [Recovered/Resolved]
  - Brain oedema [Recovered/Resolved]

NARRATIVE: CASE EVENT DATE: 2015
